FAERS Safety Report 11174100 (Version 1)
Quarter: 2015Q2

REPORT INFORMATION
  Report Type: Spontaneous
  Country: US (occurrence: None)
  Receive Date: 20150605
  Receipt Date: 20150605
  Transmission Date: 20150821
  Serious: Yes (Life-Threatening)
  Sender: FDA-Public Use
  Company Number: FK201502550

PATIENT
  Age: 53 Year
  Sex: Female

DRUGS (3)
  1. DIPRIVAN [Suspect]
     Active Substance: PROPOFOL
     Indication: GENERAL ANAESTHESIA
     Dosage: NOT OTHERWISE SPECIFIED
     Route: 042
  2. ROPIVACAINE FRESENIUS KABI (NOT SPECIFIED) (ROPIVACAINE HYDROCHLORIDE) (ROPIVACAINE HYDROCHLORIDE) [Suspect]
     Active Substance: ROPIVACAINE HYDROCHLORIDE
     Indication: GENERAL ANAESTHESIA
     Dates: start: 20150119, end: 20150119
  3. SUFENTA [Suspect]
     Active Substance: SUFENTANIL CITRATE
     Indication: GENERAL ANAESTHESIA
     Dosage: NOT OTHERWISE SPECIFIED
     Route: 042
     Dates: start: 20150119, end: 20150119

REACTIONS (5)
  - Acute respiratory distress syndrome [None]
  - Circulatory collapse [None]
  - Agitation [None]
  - Pain [None]
  - Pallor [None]

NARRATIVE: CASE EVENT DATE: 20150119
